FAERS Safety Report 12637475 (Version 1)
Quarter: 2016Q3

REPORT INFORMATION
  Report Type: Spontaneous
  Country: US (occurrence: US)
  Receive Date: 20160809
  Receipt Date: 20160809
  Transmission Date: 20161109
  Serious: No
  Sender: FDA-Public Use
  Company Number: US-BEH-2016062852

PATIENT
  Sex: Female
  Weight: 50 kg

DRUGS (27)
  1. NORMAL SALINE [Concomitant]
     Active Substance: SODIUM CHLORIDE
  2. VIVELLE [Concomitant]
     Active Substance: ESTRADIOL
  3. METHOTREXATE. [Concomitant]
     Active Substance: METHOTREXATE
  4. SOLU-MEDROL [Concomitant]
     Active Substance: METHYLPREDNISOLONE SODIUM SUCCINATE
  5. AMPHOTERICIN B. [Concomitant]
     Active Substance: AMPHOTERICIN B
  6. DICLOFENAC [Concomitant]
     Active Substance: DICLOFENAC
  7. SULFAMETHOXAZOLE- TRIMETHOPRIM [Concomitant]
  8. LIDOCAINE. [Concomitant]
     Active Substance: LIDOCAINE
  9. EPIPEN [Concomitant]
     Active Substance: EPINEPHRINE
  10. FOLIC ACID. [Concomitant]
     Active Substance: FOLIC ACID
  11. PRIVIGEN [Suspect]
     Active Substance: HUMAN IMMUNOGLOBULIN G
     Indication: ACQUIRED IMMUNODEFICIENCY SYNDROME
     Route: 042
  12. DIPHENHYDRAMINE. [Concomitant]
     Active Substance: DIPHENHYDRAMINE
  13. CYCLONE APRON [Concomitant]
  14. KETAMINE [Concomitant]
     Active Substance: KETAMINE
  15. TETRASINE [Concomitant]
  16. LEUCOVORIN. [Concomitant]
     Active Substance: LEUCOVORIN
  17. ADVAIR HFA [Concomitant]
     Active Substance: FLUTICASONE PROPIONATE\SALMETEROL XINAFOATE
  18. SODIUM CHLORIDE. [Concomitant]
     Active Substance: SODIUM CHLORIDE
  19. GABAPENTIN. [Concomitant]
     Active Substance: GABAPENTIN
  20. VITAMIN D [Concomitant]
     Active Substance: CHOLECALCIFEROL
  21. MELOXICAM. [Concomitant]
     Active Substance: MELOXICAM
  22. VITAMIN B [Concomitant]
     Active Substance: VITAMIN B
  23. CYCLOBENZAPRINE [Concomitant]
     Active Substance: CYCLOBENZAPRINE
  24. METRONIDAZOLE. [Concomitant]
     Active Substance: METRONIDAZOLE
  25. CEDAX [Concomitant]
     Active Substance: CEFTIBUTEN DIHYDRATE
  26. DOXEPIN [Concomitant]
     Active Substance: DOXEPIN
  27. VITAMIN C [Concomitant]
     Active Substance: ASCORBIC ACID

REACTIONS (2)
  - Fatigue [Unknown]
  - Administration site scar [Unknown]
